FAERS Safety Report 8243779-3 (Version None)
Quarter: 2012Q1

REPORT INFORMATION
  Report Type: 
  Country: None (occurrence: None)
  Receive Date: 20120329
  Receipt Date: 20111012
  Transmission Date: 20120608
  Serious: No
  Sender: FDA-Public Use
  Company Number: US-MYLANLABS-2011S1021273

PATIENT
  Sex: Male

DRUGS (1)
  1. EMSAM [Suspect]
     Indication: DEPRESSION
     Dosage: CHANGED Q24H
     Route: 062
     Dates: start: 20111001

REACTIONS (5)
  - OROPHARYNGEAL PAIN [None]
  - DYSPNOEA [None]
  - URINARY TRACT INFECTION [None]
  - DRY MOUTH [None]
  - PHARYNGITIS [None]
